FAERS Safety Report 8462308-2 (Version None)
Quarter: 2012Q2

REPORT INFORMATION
  Report Type: 
  Country: None (occurrence: None)
  Receive Date: 20120625
  Receipt Date: 20120614
  Transmission Date: 20120825
  Serious: Yes (Other)
  Sender: FDA-Public Use
  Company Number: BR-ASTRAZENECA-2012SE40351

PATIENT
  Age: 69 Year
  Sex: Female
  Weight: 61 kg

DRUGS (3)
  1. NEXIUM [Suspect]
     Indication: HELICOBACTER INFECTION
     Route: 048
     Dates: start: 20110101
  2. BRILINTA [Suspect]
     Indication: CORONARY ARTERY OCCLUSION
     Route: 048
     Dates: start: 20120614
  3. NEXIUM [Suspect]
     Route: 048
     Dates: start: 20110101

REACTIONS (4)
  - DYSPNOEA [None]
  - OFF LABEL USE [None]
  - ASTHENIA [None]
  - CORONARY ARTERY OCCLUSION [None]
